FAERS Safety Report 20571085 (Version 4)
Quarter: 2022Q2

REPORT INFORMATION
  Report Type: Spontaneous
  Country: US (occurrence: US)
  Receive Date: 20220309
  Receipt Date: 20220629
  Transmission Date: 20220720
  Serious: Yes (Other)
  Sender: FDA-Public Use
  Company Number: US-PHARMAESSENTIA CORPORATION-US-2022-PEC-000464

PATIENT

DRUGS (2)
  1. BESREMI [Suspect]
     Active Substance: ROPEGINTERFERON ALFA-2B-NJFT
     Indication: Polycythaemia vera
     Dosage: 100 MICROGRAM, Q2W
     Route: 058
     Dates: start: 20211230
  2. BESREMI [Suspect]
     Active Substance: ROPEGINTERFERON ALFA-2B-NJFT
     Dosage: 250 MCG ONCE TWO WEEKS
     Route: 058

REACTIONS (21)
  - Nephrolithiasis [Unknown]
  - Atrial fibrillation [Not Recovered/Not Resolved]
  - Lethargy [Unknown]
  - Drug ineffective [Unknown]
  - Abnormal faeces [Unknown]
  - Blood creatine increased [Unknown]
  - Blood glucose increased [Unknown]
  - Platelet count decreased [Not Recovered/Not Resolved]
  - Renal function test abnormal [Unknown]
  - Injection site pain [Unknown]
  - Depression [Not Recovered/Not Resolved]
  - Fatigue [Not Recovered/Not Resolved]
  - Injection site bruising [Unknown]
  - Somnolence [Unknown]
  - Asthenia [Unknown]
  - White blood cell count increased [Unknown]
  - Red blood cell count increased [Unknown]
  - COVID-19 [Unknown]
  - Polyuria [Not Recovered/Not Resolved]
  - Haematocrit abnormal [Not Recovered/Not Resolved]
  - Intentional dose omission [Unknown]

NARRATIVE: CASE EVENT DATE: 20220301
